FAERS Safety Report 16671816 (Version 2)
Quarter: 2019Q4

REPORT INFORMATION
  Report Type: Report from Study
  Country: None (occurrence: IT)
  Receive Date: 20190806
  Receipt Date: 20191218
  Transmission Date: 20200122
  Serious: Yes (Hospitalization)
  Sender: FDA-Public Use
  Company Number: IT-ABBVIE-19K-083-2877366-00

PATIENT
  Age: 84 Year
  Sex: Male

DRUGS (1)
  1. DUODOPA [Suspect]
     Active Substance: CARBIDOPA\LEVODOPA
     Indication: PARKINSON^S DISEASE
     Dosage: MD: 6+3?CR: 2,1?ED: 2
     Route: 050
     Dates: start: 20181022, end: 20191212

REACTIONS (3)
  - Weight decreased [Unknown]
  - Dyskinesia [Unknown]
  - Pyrexia [Unknown]

NARRATIVE: CASE EVENT DATE: 201907
